FAERS Safety Report 5582272-3 (Version None)
Quarter: 2008Q1

REPORT INFORMATION
  Report Type: 
  Country: None (occurrence: None)
  Receive Date: 20080104
  Receipt Date: 20071227
  Transmission Date: 20080703
  Serious: Yes (Hospitalization)
  Sender: FDA-Public Use
  Company Number: JP-MERCK-0712USA03976

PATIENT
  Age: 75 Year
  Sex: Female

DRUGS (5)
  1. ZETIA [Suspect]
     Indication: HYPERCHOLESTEROLAEMIA
     Route: 048
     Dates: end: 20070101
  2. ZETIA [Suspect]
     Route: 048
     Dates: start: 20070101
  3. ZOCOR [Concomitant]
     Route: 048
     Dates: start: 19970603, end: 20071016
  4. AMLODIPINE BESYLATE [Concomitant]
     Route: 065
     Dates: start: 19950707, end: 20071105
  5. BISOPROLOL FUMARATE [Concomitant]
     Route: 065
     Dates: start: 19950707, end: 20071105

REACTIONS (2)
  - ABDOMINAL DISTENSION [None]
  - MELAENA [None]
